FAERS Safety Report 17822850 (Version 2)
Quarter: 2020Q2

REPORT INFORMATION
  Report Type: Report from Study
  Country: None (occurrence: CH)
  Receive Date: 20200526
  Receipt Date: 20200615
  Transmission Date: 20200714
  Serious: Yes (Hospitalization)
  Sender: FDA-Public Use
  Company Number: CH-ABBVIE-20K-151-3418398-00

PATIENT
  Age: 72 Year
  Sex: Male

DRUGS (3)
  1. DUODOPA [Suspect]
     Active Substance: CARBIDOPA\LEVODOPA
     Dosage: MORNING DOSE: 3 ML,?CONTINUOUS RATE DAY: 5.9 ML/H,?EXTRA DOSE: 1 ML/16 H THERAPY
     Route: 050
     Dates: start: 20200327, end: 20200415
  2. DUODOPA [Suspect]
     Active Substance: CARBIDOPA\LEVODOPA
     Indication: PARKINSON^S DISEASE
     Route: 050
     Dates: start: 20190722, end: 20200327
  3. DUODOPA [Suspect]
     Active Substance: CARBIDOPA\LEVODOPA
     Dosage: MORNING DOSE: 3 ML,?CONTINUOUS RATE DAY: 6 ML/H,?EXTRA DOSE: 1 ML/16 H THERAPY
     Route: 050
     Dates: start: 20200415

REACTIONS (3)
  - General physical health deterioration [Unknown]
  - Freezing phenomenon [Unknown]
  - Overdose [Unknown]

NARRATIVE: CASE EVENT DATE: 202005
